FAERS Safety Report 9176086 (Version 1)
Quarter: 2013Q1

REPORT INFORMATION
  Report Type: Spontaneous
  Country: NO (occurrence: NO)
  Receive Date: 20130320
  Receipt Date: 20130320
  Transmission Date: 20140127
  Serious: Yes (Other)
  Sender: FDA-Public Use
  Company Number: NO-RB-051160-13

PATIENT
  Sex: Female

DRUGS (5)
  1. BUPRENORPHINE UNSPECIFIED INGREDIENT [Suspect]
     Indication: DRUG DEPENDENCE
     Route: 065
  2. ALCOHOL [Suspect]
     Indication: PRODUCT USED FOR UNKNOWN INDICATION
     Dosage: 1-3 DRINKS OF ALCOHOL A MONTH UP TO GA 12
     Route: 065
  3. NICOTINE [Suspect]
     Indication: TOBACCO USER
     Dosage: APPROXIMATELY 30 CIGARETTES/DAY UNTIL 2ND TRIMESTER
     Route: 055
  4. NICOTINE [Suspect]
     Dosage: 15 CIGARETTES A DAY FROM 2ND TRIMESTER
     Route: 055
  5. BENZODIAZEPINES [Suspect]
     Indication: PRODUCT USED FOR UNKNOWN INDICATION
     Dosage: ON 2-3 OCCASIONS A MONTH DURING THE 2ND AND 3RD TRIMESTER
     Route: 065

REACTIONS (3)
  - Exposure during pregnancy [Recovered/Resolved]
  - Premature delivery [Recovered/Resolved]
  - Caesarean section [None]
